FAERS Safety Report 9718673 (Version 2)
Quarter: 2013Q4

REPORT INFORMATION
  Report Type: Not Available
  Country: US (occurrence: US)
  Receive Date: 20131125
  Receipt Date: 20131125
  Transmission Date: 20140711
  Serious: No
  Sender: FDA-Public Use
  Company Number: US-H. LUNDBECK A/S-DKLU1091020

PATIENT
  Age: 30 Year
  Sex: Male

DRUGS (4)
  1. ONFI [Suspect]
     Indication: LENNOX-GASTAUT SYNDROME
     Dates: start: 201204
  2. ONFI [Suspect]
     Dates: start: 201212
  3. FELBATOL [Concomitant]
     Indication: PRODUCT USED FOR UNKNOWN INDICATION
  4. LAMICTAL [Concomitant]
     Indication: PRODUCT USED FOR UNKNOWN INDICATION

REACTIONS (5)
  - Abnormal behaviour [Recovered/Resolved]
  - Perseveration [Recovered/Resolved]
  - Nightmare [Recovered/Resolved]
  - Anxiety [Recovered/Resolved]
  - Aggression [Recovered/Resolved]
